FAERS Safety Report 24685852 (Version 3)
Quarter: 2025Q3

REPORT INFORMATION
  Report Type: Report from Study
  Country: US (occurrence: US)
  Receive Date: 20241202
  Receipt Date: 20250829
  Transmission Date: 20251020
  Serious: Yes (Life-Threatening, Other)
  Sender: BLUEBIRD BIO
  Company Number: US-BLUEBIRD BIO-US-BBB-24-00061

PATIENT
  Age: 10 Year
  Sex: Male
  Weight: 21.8 kg

DRUGS (56)
  1. ZYNTEGLO [Suspect]
     Active Substance: BETIBEGLOGENE AUTOTEMCEL
     Indication: Thalassaemia beta
     Route: 042
     Dates: start: 20230920, end: 20230920
  2. ZARXIO [Concomitant]
     Active Substance: FILGRASTIM-SNDZ
     Indication: Haematopoietic stem cell mobilisation
     Dosage: 207 MICROGRAM, QD
     Route: 065
     Dates: start: 20230421, end: 20230424
  3. MOZOBIL [Concomitant]
     Active Substance: PLERIXAFOR
     Indication: Haematopoietic stem cell mobilisation
     Route: 065
  4. MYLERAN [Concomitant]
     Active Substance: BUSULFAN
     Indication: Bone marrow conditioning regimen
     Dosage: 70 MILLIGRAM (3.2 MILLIGRAM/KILOGRAM/DAY), QD
     Route: 042
     Dates: start: 20230914, end: 20230917
  5. DEXTROSE\SODIUM CHLORIDE [Concomitant]
     Active Substance: DEXTROSE\SODIUM CHLORIDE
     Indication: Product used for unknown indication
     Route: 042
     Dates: start: 20230913, end: 20230919
  6. DEXTROSE\SODIUM CHLORIDE [Concomitant]
     Active Substance: DEXTROSE\SODIUM CHLORIDE
     Route: 042
     Dates: start: 20230919, end: 20231117
  7. DEXTROSE\SODIUM CHLORIDE [Concomitant]
     Active Substance: DEXTROSE\SODIUM CHLORIDE
     Route: 042
     Dates: start: 20230919, end: 20231117
  8. ONDANSETRON [Concomitant]
     Active Substance: ONDANSETRON
     Indication: Product used for unknown indication
     Dosage: 3.2 MILLIGRAM, Q8H
     Route: 042
     Dates: start: 20230914, end: 20230919
  9. DIPHENHYDRAMINE [Concomitant]
     Active Substance: DIPHENHYDRAMINE
     Indication: Product used for unknown indication
     Dosage: 22 MILLIGRAM, Q6H PRN
     Route: 042
     Dates: start: 20230913, end: 20231003
  10. DIPHENHYDRAMINE [Concomitant]
     Active Substance: DIPHENHYDRAMINE
     Route: 042
     Dates: start: 20230920, end: 20230920
  11. DIPHENHYDRAMINE [Concomitant]
     Active Substance: DIPHENHYDRAMINE
     Route: 042
     Dates: start: 20230928, end: 20230928
  12. LEVETIRACETAM [Concomitant]
     Active Substance: LEVETIRACETAM
     Indication: Product used for unknown indication
     Dosage: 250 MILLIGRAM, BID
     Route: 048
     Dates: start: 20230913, end: 20230919
  13. TYLENOL [Concomitant]
     Active Substance: ACETAMINOPHEN
     Indication: Product used for unknown indication
     Route: 048
     Dates: start: 20230920, end: 20230920
  14. TYLENOL [Concomitant]
     Active Substance: ACETAMINOPHEN
     Dosage: 325 MILLIGRAM, Q4H PRN
     Route: 048
     Dates: start: 20230913, end: 20231001
  15. CHLORHEXIDINE [Concomitant]
     Active Substance: CHLORHEXIDINE
     Indication: Product used for unknown indication
     Dosage: 15 MILLILITER, TID, SWISH + SPIT
     Route: 048
     Dates: start: 20230913, end: 20231117
  16. FLUCONAZOLE [Concomitant]
     Active Substance: FLUCONAZOLE
     Indication: Product used for unknown indication
     Dosage: 130 MILLIGRAM, QD
     Route: 042
     Dates: start: 20230913, end: 20231006
  17. ENDARI [Concomitant]
     Active Substance: GLUTAMINE
     Indication: Product used for unknown indication
     Dosage: 2.61 GRAM, BID
     Route: 048
     Dates: start: 20230913, end: 20230919
  18. PHYTONADIONE [Concomitant]
     Active Substance: PHYTONADIONE
     Indication: Product used for unknown indication
     Dosage: 5 MILLIGRAM, TIW, EVERY MO, WE + FR
     Route: 048
     Dates: start: 20230915, end: 20231006
  19. LEVOFLOXACIN [Concomitant]
     Active Substance: LEVOFLOXACIN
     Indication: Product used for unknown indication
     Dosage: 220 MILLIGRAM, QD
     Route: 048
     Dates: start: 20230918, end: 20230919
  20. LEVOFLOXACIN [Concomitant]
     Active Substance: LEVOFLOXACIN
     Dosage: 235 MILLIGRAM, QD
     Route: 042
     Dates: start: 20230920, end: 20230930
  21. EMEND [Concomitant]
     Active Substance: APREPITANT
     Indication: Product used for unknown indication
     Route: 048
     Dates: start: 20230914, end: 20230914
  22. EMEND [Concomitant]
     Active Substance: APREPITANT
     Dosage: 45 MILLIGRAM, QD
     Route: 048
     Dates: start: 20230915, end: 20230917
  23. AMPHETAMINE [Concomitant]
     Active Substance: AMPHETAMINE
     Indication: Product used for unknown indication
     Dosage: 15 MILLIGRAM, QD
     Route: 048
     Dates: start: 20230914, end: 20231103
  24. COTRIMOXAZOLE [Concomitant]
     Active Substance: SULFAMETHOXAZOLE\TRIMETHOPRIM
     Indication: Product used for unknown indication
     Dosage: 60 MILLIGRAM, BID - EVERY 12 HOURS
     Route: 048
     Dates: start: 20230913, end: 20230918
  25. AMINO ACIDS\CARBOHYDRATES\MINERALS\VITAMINS [Concomitant]
     Active Substance: AMINO ACIDS\CARBOHYDRATES\MINERALS\VITAMINS
     Indication: Product used for unknown indication
     Route: 042
     Dates: start: 20230918, end: 20230919
  26. AMINO ACIDS\CARBOHYDRATES\MINERALS\VITAMINS [Concomitant]
     Active Substance: AMINO ACIDS\CARBOHYDRATES\MINERALS\VITAMINS
     Route: 042
     Dates: start: 20230919, end: 20230920
  27. AMINO ACIDS\CARBOHYDRATES\MINERALS\VITAMINS [Concomitant]
     Active Substance: AMINO ACIDS\CARBOHYDRATES\MINERALS\VITAMINS
     Route: 042
     Dates: start: 20230920, end: 20230921
  28. AMINO ACIDS\CARBOHYDRATES\MINERALS\VITAMINS [Concomitant]
     Active Substance: AMINO ACIDS\CARBOHYDRATES\MINERALS\VITAMINS
     Route: 042
     Dates: start: 20230921, end: 20230922
  29. AMINO ACIDS\CARBOHYDRATES\MINERALS\VITAMINS [Concomitant]
     Active Substance: AMINO ACIDS\CARBOHYDRATES\MINERALS\VITAMINS
     Route: 042
     Dates: start: 20230922, end: 20230923
  30. AMINO ACIDS\CARBOHYDRATES\MINERALS\VITAMINS [Concomitant]
     Active Substance: AMINO ACIDS\CARBOHYDRATES\MINERALS\VITAMINS
     Route: 042
     Dates: start: 20230923, end: 20230924
  31. AMINO ACIDS\CARBOHYDRATES\MINERALS\VITAMINS [Concomitant]
     Active Substance: AMINO ACIDS\CARBOHYDRATES\MINERALS\VITAMINS
     Route: 042
     Dates: start: 20230924, end: 20230925
  32. AMINO ACIDS\CARBOHYDRATES\MINERALS\VITAMINS [Concomitant]
     Active Substance: AMINO ACIDS\CARBOHYDRATES\MINERALS\VITAMINS
     Route: 042
     Dates: start: 20230925, end: 20230926
  33. AMINO ACIDS\CARBOHYDRATES\MINERALS\VITAMINS [Concomitant]
     Active Substance: AMINO ACIDS\CARBOHYDRATES\MINERALS\VITAMINS
     Route: 042
     Dates: start: 20230926, end: 20230927
  34. AMINO ACIDS\CARBOHYDRATES\MINERALS\VITAMINS [Concomitant]
     Active Substance: AMINO ACIDS\CARBOHYDRATES\MINERALS\VITAMINS
     Route: 042
     Dates: start: 20230927, end: 20230928
  35. AMINO ACIDS\CARBOHYDRATES\MINERALS\VITAMINS [Concomitant]
     Active Substance: AMINO ACIDS\CARBOHYDRATES\MINERALS\VITAMINS
     Route: 042
     Dates: start: 20230928, end: 20230929
  36. AMINO ACIDS\CARBOHYDRATES\MINERALS\VITAMINS [Concomitant]
     Active Substance: AMINO ACIDS\CARBOHYDRATES\MINERALS\VITAMINS
     Route: 042
     Dates: start: 20230929, end: 20230930
  37. SOYBEAN OIL [Concomitant]
     Active Substance: SOYBEAN OIL
     Indication: Product used for unknown indication
     Route: 042
     Dates: start: 20230918, end: 20230919
  38. SOYBEAN OIL [Concomitant]
     Active Substance: SOYBEAN OIL
     Route: 042
     Dates: start: 20230919, end: 20230920
  39. SOYBEAN OIL [Concomitant]
     Active Substance: SOYBEAN OIL
     Route: 042
     Dates: start: 20230920, end: 20230921
  40. SOYBEAN OIL [Concomitant]
     Active Substance: SOYBEAN OIL
     Route: 042
     Dates: start: 20230921, end: 20230922
  41. SOYBEAN OIL [Concomitant]
     Active Substance: SOYBEAN OIL
     Route: 042
     Dates: start: 20230922, end: 20230923
  42. SOYBEAN OIL [Concomitant]
     Active Substance: SOYBEAN OIL
     Route: 042
     Dates: start: 20230923, end: 20230924
  43. SOYBEAN OIL [Concomitant]
     Active Substance: SOYBEAN OIL
     Route: 042
     Dates: start: 20230924, end: 20230925
  44. SOYBEAN OIL [Concomitant]
     Active Substance: SOYBEAN OIL
     Route: 042
     Dates: start: 20230925, end: 20230926
  45. SOYBEAN OIL [Concomitant]
     Active Substance: SOYBEAN OIL
     Route: 042
     Dates: start: 20230926, end: 20230927
  46. SOYBEAN OIL [Concomitant]
     Active Substance: SOYBEAN OIL
     Route: 042
     Dates: start: 20230927, end: 20230928
  47. SOYBEAN OIL [Concomitant]
     Active Substance: SOYBEAN OIL
     Route: 042
     Dates: start: 20230928, end: 20230929
  48. SOYBEAN OIL [Concomitant]
     Active Substance: SOYBEAN OIL
     Route: 042
     Dates: start: 20230929, end: 20230930
  49. HYDROXYZINE [Concomitant]
     Active Substance: HYDROXYZINE HYDROCHLORIDE
     Indication: Product used for unknown indication
     Dosage: 12.5 MILLIGRAM, Q6H, PRN
     Route: 048
     Dates: start: 20230924, end: 20231003
  50. MUPIROCIN [Concomitant]
     Active Substance: MUPIROCIN
     Indication: Product used for unknown indication
     Dosage: UNK, BID
     Route: 061
     Dates: start: 20230924, end: 20230925
  51. CHOLECALCIFEROL [Concomitant]
     Active Substance: CHOLECALCIFEROL
     Indication: Product used for unknown indication
     Dosage: 25 MICROGRAM, QD
     Route: 048
     Dates: start: 20230926, end: 20231005
  52. MORPHINE [Concomitant]
     Active Substance: MORPHINE
     Indication: Product used for unknown indication
     Dosage: 2 MILLIGRAM, Q4H PRN
     Route: 042
     Dates: start: 20230928, end: 20230929
  53. MORPHINE [Concomitant]
     Active Substance: MORPHINE
     Route: 042
     Dates: start: 20230929, end: 20230929
  54. MORPHINE [Concomitant]
     Active Substance: MORPHINE
     Route: 042
     Dates: start: 20230929, end: 20230930
  55. PLATELETS [Concomitant]
     Active Substance: HUMAN PLATELET, ALLOGENIC
     Indication: Product used for unknown indication
     Route: 042
     Dates: start: 20230929
  56. HUMAN RED BLOOD CELL [Concomitant]
     Active Substance: HUMAN RED BLOOD CELL
     Indication: Product used for unknown indication
     Route: 042
     Dates: start: 20230928, end: 20230929

REACTIONS (2)
  - Venoocclusive liver disease [Recovered/Resolved]
  - Epistaxis [Recovered/Resolved]

NARRATIVE: CASE EVENT DATE: 20230930
